FAERS Safety Report 14650028 (Version 1)
Quarter: 2018Q1

REPORT INFORMATION
  Report Type: Spontaneous
  Country: US (occurrence: US)
  Receive Date: 20180316
  Receipt Date: 20180316
  Transmission Date: 20180509
  Serious: Yes (Other)
  Sender: FDA-Public Use
  Company Number: None

PATIENT
  Age: 64 Year
  Sex: Male
  Weight: 119.29 kg

DRUGS (8)
  1. LISINOPRIL 5MG TAB [Suspect]
     Active Substance: LISINOPRIL
     Route: 048
     Dates: start: 20170823
  2. ATORVASTATIN 20MG TAB [Concomitant]
     Active Substance: ATORVASTATIN
  3. CALCIUM-VIT D 500MG [Concomitant]
  4. IBUPROFEN 800MG TAB [Concomitant]
  5. ASPIRIN 81MG CHEWABLE TAB [Concomitant]
  6. LISINOPRIL 5MG TAB [Concomitant]
  7. AMLODIPINE [Concomitant]
     Active Substance: AMLODIPINE BESYLATE
  8. TAMSULOSIN 0.4MG CAP [Concomitant]

REACTIONS (1)
  - Cough [None]

NARRATIVE: CASE EVENT DATE: 20180227
